FAERS Safety Report 5414375-8 (Version None)
Quarter: 2007Q3

REPORT INFORMATION
  Report Type: 
  Country: None (occurrence: None)
  Receive Date: 20070713
  Receipt Date: 20070516
  Transmission Date: 20080115
  Serious: Yes (Hospitalization)
  Sender: FDA-Public Use
  Company Number: US-JNJFOC-20060903691

PATIENT
  Age: 22 Year
  Sex: Female
  Weight: 59.8748 kg

DRUGS (2)
  1. ORTHO EVRA [Suspect]
     Indication: DRUG USE FOR UNKNOWN INDICATION
     Dates: start: 20040601
  2. SYNTHROID [Concomitant]

REACTIONS (1)
  - CEREBROVASCULAR ACCIDENT [None]
